FAERS Safety Report 5908257-2 (Version None)
Quarter: 2008Q4

REPORT INFORMATION
  Report Type: 
  Country: None (occurrence: None)
  Receive Date: 20081006
  Receipt Date: 20080905
  Transmission Date: 20090506
  Serious: No
  Sender: FDA-Public Use
  Company Number: US-BAYER-200833177NA

PATIENT
  Age: 55 Year
  Sex: Male

DRUGS (6)
  1. LEVITRA [Suspect]
     Indication: ERECTILE DYSFUNCTION
  2. LEVITRA [Suspect]
  3. CLONIDINE [Concomitant]
  4. COREG [Concomitant]
  5. BENAZEPRIL HYDROCHLORIDE [Concomitant]
  6. PROCARDIA [Concomitant]

REACTIONS (1)
  - ERECTILE DYSFUNCTION [None]
